FAERS Safety Report 10248007 (Version 1)
Quarter: 2014Q2

REPORT INFORMATION
  Report Type: Report from Study
  Country: BR (occurrence: BR)
  Receive Date: 20140619
  Receipt Date: 20140619
  Transmission Date: 20141212
  Serious: Yes (Other)
  Sender: FDA-Public Use
  Company Number: PHHY2014BR076164

PATIENT
  Sex: Female
  Weight: 105 kg

DRUGS (1)
  1. DIOVAN [Suspect]
     Indication: HYPERTENSION
     Dosage: 1 DF (10 O 20 MG), IN THE MORNING
     Route: 048

REACTIONS (4)
  - Neoplasm malignant [Unknown]
  - Fungal infection [Unknown]
  - Pruritus genital [Unknown]
  - Bradyphrenia [Unknown]
